FAERS Safety Report 8423587-0 (Version None)
Quarter: 2012Q2

REPORT INFORMATION
  Report Type: 
  Country: None (occurrence: None)
  Receive Date: 20120608
  Receipt Date: 20120601
  Transmission Date: 20120825
  Serious: No
  Sender: FDA-Public Use
  Company Number: US-ASTRAZENECA-2010SE47123

PATIENT
  Age: 67 Year
  Sex: Female

DRUGS (5)
  1. SYMBICORT [Suspect]
     Dosage: 160/4.5 MCG DAILY
     Route: 055
  2. ASCORBIC ACID [Concomitant]
  3. MUCINEX [Concomitant]
  4. SYMBICORT [Suspect]
     Dosage: PRESCRIPTION FOR 2 PUFFS TWO TIMES A DAY, HOWEVER SHE HAS TAKING ONE PUFF TWICE DAILY
     Route: 055
  5. OXYGEN [Concomitant]

REACTIONS (11)
  - DRY MOUTH [None]
  - TOTAL LUNG CAPACITY DECREASED [None]
  - INCORRECT DOSE ADMINISTERED [None]
  - URINARY TRACT INFECTION [None]
  - CONTUSION [None]
  - DRUG DOSE OMISSION [None]
  - OXYGEN CONSUMPTION DECREASED [None]
  - PSEUDOMONAS INFECTION [None]
  - COUGH [None]
  - NAUSEA [None]
  - FUNGAL INFECTION [None]
